FAERS Safety Report 6964145-4 (Version None)
Quarter: 2010Q3

REPORT INFORMATION
  Report Type: 
  Country: None (occurrence: None)
  Receive Date: 20100903
  Receipt Date: 20100830
  Transmission Date: 20110219
  Serious: Yes (Hospitalization)
  Sender: FDA-Public Use
  Company Number: US-BIOGENIDEC-2010BI010894

PATIENT
  Age: 63 Year
  Sex: Male

DRUGS (1)
  1. TYSABRI [Suspect]
     Indication: MULTIPLE SCLEROSIS
     Route: 042
     Dates: start: 20080806

REACTIONS (7)
  - BLOOD POTASSIUM INCREASED [None]
  - DYSURIA [None]
  - GAIT DISTURBANCE [None]
  - GLAUCOMA [None]
  - MEMORY IMPAIRMENT [None]
  - PROSTATOMEGALY [None]
  - URINARY TRACT INFECTION [None]
